FAERS Safety Report 15709468 (Version 1)
Quarter: 2018Q4

REPORT INFORMATION
  Report Type: Other
  Country: CZ (occurrence: CZ)
  Receive Date: 20181211
  Receipt Date: 20181211
  Transmission Date: 20190205
  Serious: Yes (Hospitalization, Other)
  Sender: FDA-Public Use
  Company Number: CZ-APOTEX-2018AP026691

PATIENT
  Age: 25 Year
  Sex: Male
  Weight: 130 kg

DRUGS (3)
  1. QUETIAPINE. [Suspect]
     Active Substance: QUETIAPINE
     Indication: SCHIZOPHRENIA
     Dosage: 800 MG, QD
     Route: 065
  2. PALIPERIDONE. [Suspect]
     Active Substance: PALIPERIDONE
     Indication: SCHIZOPHRENIA
     Dosage: DOSAGE FORM: OROS (ORAL OSMOTIC) THERAPEUTIC SYSTEM TABLET
     Route: 048
     Dates: start: 20150727, end: 20150727
  3. LEVOMEPROMAZINE [Suspect]
     Active Substance: LEVOMEPROMAZINE
     Indication: SCHIZOPHRENIA
     Dosage: 125 MG,QD
     Route: 065

REACTIONS (15)
  - Nausea [Recovering/Resolving]
  - Tachycardia [Recovering/Resolving]
  - Constipation [Recovering/Resolving]
  - Obesity [Recovering/Resolving]
  - Pyrexia [Recovered/Resolved]
  - Vertigo [Recovering/Resolving]
  - Pollakiuria [Recovering/Resolving]
  - Hyponatraemia [Recovering/Resolving]
  - Dyspnoea [Recovering/Resolving]
  - Hospitalisation [Unknown]
  - Abdominal pain [Recovering/Resolving]
  - Vomiting [Recovering/Resolving]
  - Hypercholesterolaemia [Recovering/Resolving]
  - Inflammatory marker increased [Recovered/Resolved]
  - Hyperglycaemia [Recovering/Resolving]

NARRATIVE: CASE EVENT DATE: 20150725
